FAERS Safety Report 7674171-8 (Version None)
Quarter: 2011Q3

REPORT INFORMATION
  Report Type: 
  Country: None (occurrence: None)
  Receive Date: 20110810
  Receipt Date: 20110801
  Transmission Date: 20111222
  Serious: Yes (Other)
  Sender: FDA-Public Use
  Company Number: IE-JNJFOC-20110304949

PATIENT
  Age: 26 Year
  Sex: Female

DRUGS (6)
  1. DURAGESIC-100 [Suspect]
     Indication: PAIN
     Route: 062
  2. VALIUM [Concomitant]
     Indication: BACK INJURY
     Route: 065
  3. VALIUM [Concomitant]
     Indication: PAIN
     Route: 065
  4. IBRUPROFEN [Concomitant]
     Indication: BACK INJURY
     Route: 065
  5. DURAGESIC-100 [Suspect]
     Indication: BACK INJURY
     Route: 062
  6. IBRUPROFEN [Concomitant]
     Indication: PAIN
     Route: 065

REACTIONS (1)
  - ANAPHYLACTIC REACTION [None]
